FAERS Safety Report 4970459-X (Version None)
Quarter: 2006Q2

REPORT INFORMATION
  Report Type: 
  Country: None (occurrence: None)
  Receive Date: 20060406
  Receipt Date: 20060321
  Transmission Date: 20061013
  Serious: Yes (Other)
  Sender: FDA-Public Use
  Company Number: DE200603005490

PATIENT
  Age: 9 Year
  Sex: Male

DRUGS (1)
  1. STRATTERA [Suspect]
     Indication: ATTENTION DEFICIT/HYPERACTIVITY DISORDER
     Dosage: 25 MG, DAILY (1/D), ORAL
     Route: 048
     Dates: start: 20050501, end: 20050801

REACTIONS (4)
  - DEPRESSED MOOD [None]
  - HEAD INJURY [None]
  - SELF INJURIOUS BEHAVIOUR [None]
  - SUICIDAL IDEATION [None]
